FAERS Safety Report 8060928-0 (Version None)
Quarter: 2012Q1

REPORT INFORMATION
  Report Type: 
  Country: None (occurrence: None)
  Receive Date: 20120120
  Receipt Date: 20110829
  Transmission Date: 20120608
  Serious: No
  Sender: FDA-Public Use
  Company Number: US-ALLERGAN-1104381US

PATIENT
  Age: 58 Year
  Sex: Female

DRUGS (4)
  1. RESTASIS [Suspect]
     Dosage: 2 GTT, BID
     Route: 047
     Dates: start: 20110801, end: 20110825
  2. BLINK                              /00582501/ [Suspect]
     Indication: DRY EYE
     Dosage: UNK
     Dates: start: 20110327
  3. PROPYLENE GLYCOL [Suspect]
     Indication: DRY EYE
     Dosage: UNK
     Dates: start: 20110327
  4. RESTASIS [Suspect]
     Indication: DRY EYE
     Dosage: 2 GTT, BID
     Route: 047
     Dates: start: 20110101, end: 20110315

REACTIONS (4)
  - LIP DRY [None]
  - DRY MOUTH [None]
  - HYPOAESTHESIA ORAL [None]
  - LIP SWELLING [None]
